FAERS Safety Report 8317859-8 (Version None)
Quarter: 2012Q2

REPORT INFORMATION
  Report Type: 
  Country: None (occurrence: None)
  Receive Date: 20120427
  Receipt Date: 20120417
  Transmission Date: 20120825
  Serious: No
  Sender: FDA-Public Use
  Company Number: US-JNJFOC-20120408139

PATIENT
  Age: 42 Year
  Sex: Female
  Weight: 70.76 kg

DRUGS (21)
  1. FENTANYL-100 [Suspect]
     Route: 062
     Dates: start: 20110101, end: 20110101
  2. FENTANYL-100 [Suspect]
     Route: 062
     Dates: start: 20110101, end: 20110101
  3. VITAMIN D [Concomitant]
     Indication: VITAMIN SUPPLEMENTATION
     Route: 048
     Dates: start: 19980101
  4. FENTANYL-100 [Suspect]
     Indication: NERVE INJURY
     Route: 062
     Dates: start: 20110101, end: 20110101
  5. FENTANYL-100 [Suspect]
     Route: 062
     Dates: start: 20110101, end: 20110101
  6. LEVOTHYROXINE SODIUM [Concomitant]
     Indication: THYROIDECTOMY
     Route: 048
     Dates: start: 19980101
  7. FENTANYL-100 [Suspect]
     Route: 062
     Dates: start: 20110101, end: 20110101
  8. FENTANYL-100 [Suspect]
     Route: 062
     Dates: start: 20110101, end: 20110101
  9. FENTANYL-100 [Suspect]
     Route: 062
     Dates: start: 20110101, end: 20110101
  10. FENTANYL-100 [Suspect]
     Route: 062
     Dates: start: 20110101, end: 20110101
  11. FENTANYL-100 [Suspect]
     Route: 062
     Dates: start: 20110101
  12. TIZANIDINE HCL [Concomitant]
     Indication: MUSCLE SPASMS
     Route: 048
  13. FENTANYL-100 [Suspect]
     Route: 062
     Dates: start: 20110101, end: 20110101
  14. DIOVAN [Concomitant]
     Indication: HYPERTENSION
     Dosage: 320/12.5 MG
     Route: 048
     Dates: start: 20020101
  15. FISH OIL [Concomitant]
     Indication: MEDICAL DIET
     Route: 048
  16. FENTANYL-100 [Suspect]
     Indication: COSTOCHONDRITIS
     Route: 062
     Dates: start: 20110101, end: 20110101
  17. FENTANYL-100 [Suspect]
     Route: 062
     Dates: start: 20110101
  18. FENTANYL-100 [Suspect]
     Indication: INTERVERTEBRAL DISC DEGENERATION
     Route: 062
     Dates: start: 20110101, end: 20110101
  19. FENTANYL-100 [Suspect]
     Route: 062
     Dates: start: 20110101
  20. FENTANYL-100 [Suspect]
     Route: 062
     Dates: start: 20110101, end: 20110101
  21. MULTIPLE VITAMIN [Concomitant]
     Indication: VITAMIN SUPPLEMENTATION
     Route: 048

REACTIONS (7)
  - APPLICATION SITE RASH [None]
  - TREATMENT NONCOMPLIANCE [None]
  - DRUG EFFECT INCREASED [None]
  - HYPERSENSITIVITY [None]
  - DRUG DOSE OMISSION [None]
  - PREMATURE MENOPAUSE [None]
  - PRODUCT QUALITY ISSUE [None]
